FAERS Safety Report 25134997 (Version 1)
Quarter: 2025Q1

REPORT INFORMATION
  Report Type: Spontaneous
  Country: NL (occurrence: NL)
  Receive Date: 20250328
  Receipt Date: 20250328
  Transmission Date: 20250409
  Serious: Yes (Death, Other)
  Sender: ALEXION PHARMACEUTICALS
  Company Number: NL-ASTRAZENECA-202503GLO022221NL

PATIENT
  Age: 23 Year

DRUGS (6)
  1. SEROQUEL [Interacting]
     Active Substance: QUETIAPINE FUMARATE
     Indication: Product used for unknown indication
     Route: 065
  2. ALCOHOL [Suspect]
     Active Substance: ALCOHOL
     Indication: Product used for unknown indication
     Route: 065
  3. COCAINE [Suspect]
     Active Substance: COCAINE
     Indication: Product used for unknown indication
     Route: 065
  4. OXYCODONE [Interacting]
     Active Substance: OXYCODONE
     Indication: Product used for unknown indication
     Route: 065
  5. UNSPECIFIED INGREDIENT [Suspect]
     Active Substance: UNSPECIFIED INGREDIENT
     Indication: Product used for unknown indication
     Route: 065
  6. GRAPEFRUIT [Interacting]
     Active Substance: GRAPEFRUIT
     Indication: Product used for unknown indication
     Route: 065

REACTIONS (4)
  - Overdose [Fatal]
  - Toxic leukoencephalopathy [Fatal]
  - Multiple organ dysfunction syndrome [Fatal]
  - Food interaction [Unknown]
